FAERS Safety Report 19460840 (Version 1)
Quarter: 2021Q2

REPORT INFORMATION
  Report Type: Spontaneous
  Country: US (occurrence: US)
  Receive Date: 20210625
  Receipt Date: 20210625
  Transmission Date: 20210717
  Serious: Yes (Hospitalization)
  Sender: FDA-Public Use
  Company Number: US-PFIZER INC-2021384528

PATIENT
  Age: 61 Year
  Sex: Female
  Weight: 70.31 kg

DRUGS (2)
  1. ZOLOFT [Suspect]
     Active Substance: SERTRALINE HYDROCHLORIDE
     Dosage: 7 MG, DAILY
     Route: 048
     Dates: start: 20210322
  2. ZOLOFT [Suspect]
     Active Substance: SERTRALINE HYDROCHLORIDE
     Dosage: 25 MG, 1X/DAY
     Route: 048
     Dates: start: 20200414

REACTIONS (11)
  - Discomfort [Unknown]
  - Palpitations [Unknown]
  - Visual impairment [Unknown]
  - Nausea [Unknown]
  - Emotional disorder [Unknown]
  - Crying [Unknown]
  - Anxiety [Unknown]
  - Diarrhoea [Unknown]
  - Asthenia [Unknown]
  - Electric shock sensation [Unknown]
  - Dizziness [Unknown]
